FAERS Safety Report 23522949 (Version 1)
Quarter: 2024Q1

REPORT INFORMATION
  Report Type: Spontaneous
  Country: US (occurrence: None)
  Receive Date: 20240213
  Receipt Date: 20240213
  Transmission Date: 20240410
  Serious: No
  Sender: FDA-Public Use
  Company Number: None

PATIENT
  Age: 57 Year
  Sex: Female
  Weight: 90 kg

DRUGS (17)
  1. MIEBO [Suspect]
     Active Substance: PERFLUOROHEXYLOCTANE
     Indication: Dry eye
     Dosage: FREQUENCY : 4 TIMES A DAY;?
     Route: 047
     Dates: start: 20240213, end: 20240213
  2. ARMODAFINIL [Concomitant]
     Active Substance: ARMODAFINIL
  3. ATORVASTATIN [Concomitant]
     Active Substance: ATORVASTATIN
  4. AIMOVIG [Concomitant]
     Active Substance: ERENUMAB-AOOE
  5. LEVOTHYROXINE [Concomitant]
     Active Substance: LEVOTHYROXINE\LEVOTHYROXINE SODIUM
  6. LAMOTRIGINE [Concomitant]
     Active Substance: LAMOTRIGINE
  7. NAPROXEN [Concomitant]
     Active Substance: NAPROXEN
  8. PROPRANOLOL [Concomitant]
     Active Substance: PROPRANOLOL HYDROCHLORIDE
  9. TIZANIDINE [Concomitant]
     Active Substance: TIZANIDINE
  10. TOPIRAMATE [Concomitant]
     Active Substance: TOPIRAMATE
  11. TRAZODONE [Concomitant]
     Active Substance: TRAZODONE HYDROCHLORIDE
  12. VIIBRYD [Concomitant]
     Active Substance: VILAZODONE HYDROCHLORIDE
  13. ZOLMITRIPTAN [Concomitant]
     Active Substance: ZOLMITRIPTAN
  14. MAGNESIUM [Concomitant]
     Active Substance: MAGNESIUM
  15. VITAMIN D [Concomitant]
     Active Substance: VITAMIN D NOS
  16. MELATONIN [Concomitant]
     Active Substance: MELATONIN
  17. VITAMINS [Concomitant]
     Active Substance: VITAMINS

REACTIONS (4)
  - Instillation site erythema [None]
  - Instillation site irritation [None]
  - Vision blurred [None]
  - Eye pain [None]

NARRATIVE: CASE EVENT DATE: 20240213
